FAERS Safety Report 22070228 (Version 1)
Quarter: 2023Q1

REPORT INFORMATION
  Report Type: Report from Study
  Country: US (occurrence: US)
  Receive Date: 20230307
  Receipt Date: 20230307
  Transmission Date: 20230417
  Serious: Yes (Hospitalization)
  Sender: FDA-Public Use
  Company Number: US-TAKEDA-2023TUS009932

PATIENT
  Sex: Female

DRUGS (2)
  1. MARIBAVIR [Suspect]
     Active Substance: MARIBAVIR
     Indication: Lung transplant
     Dosage: 2 DOSAGE FORM, BID
     Route: 048
     Dates: start: 20230111
  2. MARIBAVIR [Suspect]
     Active Substance: MARIBAVIR
     Dosage: 2 DOSAGE FORM, BID
     Route: 048

REACTIONS (3)
  - Hospitalisation [Unknown]
  - Cytomegalovirus test positive [Unknown]
  - Fatigue [Unknown]
